FAERS Safety Report 5346807-8 (Version None)
Quarter: 2007Q2

REPORT INFORMATION
  Report Type: 
  Country: None (occurrence: None)
  Receive Date: 20070604
  Receipt Date: 20070518
  Transmission Date: 20071010
  Serious: Yes (Other)
  Sender: FDA-Public Use
  Company Number: 2007RR-07706

PATIENT
  Age: 31 Year
  Sex: Female

DRUGS (1)
  1. SIMVASTATIN [Suspect]
     Dosage: 10 MG, QD

REACTIONS (1)
  - GLYCOGEN STORAGE DISEASE TYPE V [None]
